FAERS Safety Report 12662865 (Version 1)
Quarter: 2016Q3

REPORT INFORMATION
  Report Type: Report from Study
  Country: JP (occurrence: JP)
  Receive Date: 20160818
  Receipt Date: 20160818
  Transmission Date: 20161109
  Serious: Yes (Hospitalization, Other)
  Sender: FDA-Public Use
  Company Number: JP-009507513-1608JPN001338

PATIENT
  Age: 85 Year
  Sex: Male
  Weight: 49 kg

DRUGS (6)
  1. VANCOMYCIN [Concomitant]
     Active Substance: VANCOMYCIN
     Indication: STAPHYLOCOCCAL SEPSIS
     Dosage: TOTAL DAILY DOSE 1 G; DIVIDED DOSE FREQUENCY UNKNOWN
     Route: 041
     Dates: start: 20160210, end: 20160210
  2. METHYLPREDNISOLONE SODIUM SUCCINATE. [Concomitant]
     Active Substance: METHYLPREDNISOLONE SODIUM SUCCINATE
     Dosage: 6.4 MG, QD
     Route: 051
     Dates: start: 20160210
  3. TAKEPRON [Concomitant]
     Active Substance: LANSOPRAZOLE
     Dosage: 30 MG, BID
     Route: 051
     Dates: start: 20160210
  4. CEFAZOLIN SODIUM. [Concomitant]
     Active Substance: CEFAZOLIN SODIUM
     Indication: STAPHYLOCOCCAL SEPSIS
     Dosage: TOTAL DAILY DOSE 1 G; DIVIDED DOSE FREQUENCY UNKNOWN
     Route: 041
     Dates: start: 20160210, end: 20160211
  5. ANAEMETRO [Concomitant]
     Active Substance: METRONIDAZOLE
     Indication: STAPHYLOCOCCAL SEPSIS
     Dosage: 500 MG, TID
     Route: 051
     Dates: start: 20160210, end: 20160217
  6. CUBICIN [Suspect]
     Active Substance: DAPTOMYCIN
     Indication: STAPHYLOCOCCAL SEPSIS
     Dosage: 7 MG/KG, QOD
     Route: 041
     Dates: start: 20160212, end: 20160222

REACTIONS (5)
  - Pneumonia [Recovered/Resolved]
  - Overdose [Unknown]
  - Drug ineffective [Unknown]
  - Staphylococcal sepsis [Recovered/Resolved]
  - Arthritis [Recovered/Resolved]

NARRATIVE: CASE EVENT DATE: 20160212
